FAERS Safety Report 9119707 (Version 1)
Quarter: 2013Q1

REPORT INFORMATION
  Report Type: Spontaneous
  Country: FR (occurrence: FR)
  Receive Date: 20130226
  Receipt Date: 20130226
  Transmission Date: 20140127
  Serious: Yes (Hospitalization)
  Sender: FDA-Public Use
  Company Number: FR-PFIZER INC-2013065997

PATIENT
  Age: 49 Year
  Sex: Male

DRUGS (4)
  1. TAZOCILLINE [Suspect]
     Indication: LUNG DISORDER
     Dosage: 1 DF, 1X/DAY
     Route: 042
     Dates: start: 20121213, end: 20121219
  2. AMIKACINE MYLAN [Suspect]
     Indication: LUNG DISORDER
     Dosage: UNK
     Route: 042
     Dates: start: 20121216, end: 20121219
  3. AUGMENTIN [Suspect]
     Indication: LUNG DISORDER
     Dosage: UNK
     Route: 048
     Dates: start: 20121214, end: 20121216
  4. ROCEPHINE [Concomitant]
     Indication: LUNG DISORDER
     Dosage: UNK
     Route: 042
     Dates: start: 20121212, end: 20121213

REACTIONS (1)
  - Rash maculo-papular [Not Recovered/Not Resolved]
